FAERS Safety Report 15537186 (Version 2)
Quarter: 2019Q3

REPORT INFORMATION
  Report Type: Report from Study
  Country: DE (occurrence: DE)
  Receive Date: 20181022
  Receipt Date: 20190925
  Transmission Date: 20191004
  Serious: Yes (Hospitalization)
  Sender: FDA-Public Use
  Company Number: DE-PFIZER INC-2018420284

PATIENT
  Age: 55 Year
  Sex: Male
  Weight: 100 kg

DRUGS (15)
  1. IRINOTECAN HCL [Suspect]
     Active Substance: IRINOTECAN HYDROCHLORIDE
     Indication: COLORECTAL CANCER METASTATIC
     Dosage: 360 MG, UNK
     Route: 065
     Dates: start: 20180122
  2. VECTIBIX [Suspect]
     Active Substance: PANITUMUMAB
     Dosage: 570 MG, UNK
     Route: 042
     Dates: start: 20180326
  3. VECTIBIX [Suspect]
     Active Substance: PANITUMUMAB
     Dosage: 570 MG, UNK
     Route: 042
     Dates: start: 20180627
  4. VECTIBIX [Suspect]
     Active Substance: PANITUMUMAB
     Dosage: 560 MG, UNK
     Route: 042
     Dates: start: 20180711
  5. FLUOROURACIL. [Suspect]
     Active Substance: FLUOROURACIL
     Indication: COLORECTAL CANCER METASTATIC
     Dosage: 4800 MG, UNK
     Route: 042
     Dates: start: 20180122
  6. PANTOZOL [Concomitant]
     Active Substance: PANTOPRAZOLE SODIUM
     Indication: ESSENTIAL HYPERTENSION
     Dosage: 40 MG, 1X/DAY
     Route: 048
  7. VECTIBIX [Suspect]
     Active Substance: PANITUMUMAB
     Dosage: 580 MG, UNK
     Route: 042
     Dates: start: 20180312
  8. VECTIBIX [Suspect]
     Active Substance: PANITUMUMAB
     Dosage: 580 MG, UNK
     Route: 042
     Dates: start: 20180508
  9. VECTIBIX [Suspect]
     Active Substance: PANITUMUMAB
     Dosage: 560 MG, UNK
     Route: 042
     Dates: start: 20180523
  10. VECTIBIX [Suspect]
     Active Substance: PANITUMUMAB
     Indication: COLORECTAL CANCER METASTATIC
     Dosage: 590 MG, UNK
     Route: 042
     Dates: start: 20180122
  11. VECTIBIX [Suspect]
     Active Substance: PANITUMUMAB
     Dosage: 560 MG, UNK
     Route: 042
     Dates: start: 20180226
  12. METOPROLOL. [Concomitant]
     Active Substance: METOPROLOL
     Indication: ESSENTIAL HYPERTENSION
     Dosage: 95 MG, 1X/DAY
     Route: 048
  13. RAMIPRIL BETA COMP [Concomitant]
     Indication: ESSENTIAL HYPERTENSION
     Dosage: 10 MG, 1X/DAY
     Route: 048
  14. VECTIBIX [Suspect]
     Active Substance: PANITUMUMAB
     Dosage: 570 MG, UNK
     Route: 042
     Dates: start: 20180725
  15. CALCIUM FOLINATE [Suspect]
     Active Substance: LEUCOVORIN CALCIUM
     Indication: COLORECTAL CANCER METASTATIC
     Dosage: 800 MG, UNK
     Dates: start: 20180122

REACTIONS (4)
  - Jaundice [Recovering/Resolving]
  - Nausea [Recovered/Resolved]
  - Diarrhoea [Recovered/Resolved]
  - Vomiting [Recovered/Resolved]

NARRATIVE: CASE EVENT DATE: 20180731
